FAERS Safety Report 23423618 (Version 1)
Quarter: 2024Q1

REPORT INFORMATION
  Report Type: Spontaneous
  Country: US (occurrence: US)
  Receive Date: 20240119
  Receipt Date: 20240119
  Transmission Date: 20240410
  Serious: No
  Sender: FDA-Public Use
  Company Number: US-009507513-2401USA001002

PATIENT
  Sex: Female

DRUGS (4)
  1. PRIMAXIN IV [Suspect]
     Active Substance: CILASTATIN SODIUM\IMIPENEM
     Indication: Mycobacterium avium complex infection
  2. AMIKACIN [Concomitant]
     Active Substance: AMIKACIN
     Indication: Mycobacterium avium complex infection
  3. CLOFAZIMINE [Concomitant]
     Active Substance: CLOFAZIMINE
     Indication: Mycobacterium avium complex infection
  4. OMADACYCLINE [Concomitant]
     Active Substance: OMADACYCLINE
     Indication: Mycobacterium avium complex infection
     Dosage: 150 MILLIGRAM, ONCE; GOAL DOSE 300MG A DAY

REACTIONS (1)
  - Product use in unapproved indication [Unknown]
